FAERS Safety Report 15844220 (Version 2)
Quarter: 2019Q1

REPORT INFORMATION
  Report Type: Spontaneous
  Country: KR (occurrence: KR)
  Receive Date: 20190118
  Receipt Date: 20190205
  Transmission Date: 20190417
  Serious: Yes (Life-Threatening)
  Sender: FDA-Public Use
  Company Number: KR-PFIZER INC-2019019729

PATIENT
  Age: 67 Year
  Sex: Male
  Weight: 61 kg

DRUGS (12)
  1. MIDAZOLAM [Concomitant]
     Active Substance: MIDAZOLAM HYDROCHLORIDE
     Dosage: 7.5 MG, UNK (1 H PRIOR TO THE INDUCTION OF ANESTHESIA)
     Route: 048
  2. SEVOFLURANE. [Concomitant]
     Active Substance: SEVOFLURANE
     Indication: ANAESTHESIA
     Dosage: UNK 3 VOL% IN OXYGEN WAS APPLIED)
  3. REMIFENTANIL [Concomitant]
     Active Substance: REMIFENTANIL
     Indication: ENDOTRACHEAL INTUBATION
     Dosage: UNK (CONTINUOUS INFUSION, 0.25 UG/KG/MIN, THROUGHOUT THE INDUCTION)
     Route: 042
  4. PROPOFOL. [Concomitant]
     Active Substance: PROPOFOL
     Dosage: 2 MG/KG, UNK
     Route: 042
  5. CARDURA [Concomitant]
     Active Substance: DOXAZOSIN MESYLATE
     Dosage: 4 MG, DAILY
     Route: 048
  6. MIDAZOLAM [Concomitant]
     Active Substance: MIDAZOLAM HYDROCHLORIDE
     Indication: ANAESTHETIC PREMEDICATION
     Dosage: 7.5 MG, UNK (1 H PRIOR TO THE INDUCTION OF ANESTHESIA)
     Route: 048
  7. PROPOFOL. [Concomitant]
     Active Substance: PROPOFOL
     Indication: ANAESTHESIA
     Dosage: 2 MG/KG, UNK
     Route: 042
  8. SEVOFLURANE. [Concomitant]
     Active Substance: SEVOFLURANE
     Dosage: UNK (3 VOL% IN OXYGEN WAS APPLIED)
  9. OXYGEN. [Concomitant]
     Active Substance: OXYGEN
     Dosage: UNK (BY MASK)
  10. ROCURONIUM BROMIDE. [Suspect]
     Active Substance: ROCURONIUM BROMIDE
     Indication: ANAESTHESIA
     Dosage: 50 MG, UNK (INJECTION)
  11. ROCURONIUM BROMIDE. [Suspect]
     Active Substance: ROCURONIUM BROMIDE
     Dosage: 0.8 MG/KG, UNK (OVER 5 SECONDS)INJECTION
  12. REMIFENTANIL [Concomitant]
     Active Substance: REMIFENTANIL
     Indication: ANAESTHESIA
     Dosage: UNK (0.25 UG/KG/MIN, CONTINUOUS INFUSION)
     Route: 042

REACTIONS (2)
  - Hypertensive crisis [Recovering/Resolving]
  - Norepinephrine increased [Unknown]
